FAERS Safety Report 22102906 (Version 2)
Quarter: 2023Q1

REPORT INFORMATION
  Report Type: Spontaneous
  Country: CN (occurrence: CN)
  Receive Date: 20230316
  Receipt Date: 20230323
  Transmission Date: 20230417
  Serious: Yes (Hospitalization)
  Sender: FDA-Public Use
  Company Number: CN-PFIZER INC-PV202300046412

PATIENT
  Age: 14 Month
  Sex: Female
  Weight: 10 kg

DRUGS (3)
  1. AZITHROMYCIN [Suspect]
     Active Substance: AZITHROMYCIN
     Indication: Mycoplasma infection
     Dosage: 0.1 G, 1X/DAY
     Route: 048
     Dates: start: 20230301, end: 20230302
  2. GLUTATHIONE [Concomitant]
     Active Substance: GLUTATHIONE
     Indication: Hepatic function abnormal
     Dosage: 0.3 G, 1X/DAY
     Route: 041
     Dates: start: 20230225, end: 20230303
  3. VITAMIN C [Concomitant]
     Active Substance: ASCORBIC ACID
     Indication: Vitamin supplementation
     Dosage: 0.5 G, 1X/DAY
     Route: 041
     Dates: start: 20230225, end: 20230303

REACTIONS (9)
  - Nausea [Recovered/Resolved]
  - Infantile vomiting [Recovered/Resolved]
  - Diarrhoea [Recovered/Resolved]
  - Pyrexia [Recovered/Resolved]
  - Depressed mood [Recovered/Resolved]
  - Decreased appetite [Recovered/Resolved]
  - Mental status changes [Recovered/Resolved]
  - Urine output decreased [Recovered/Resolved]
  - Abdominal discomfort [Recovered/Resolved]

NARRATIVE: CASE EVENT DATE: 20230302
